FAERS Safety Report 22121533 (Version 1)
Quarter: 2023Q1

REPORT INFORMATION
  Report Type: Report from Study
  Country: CA (occurrence: CA)
  Receive Date: 20230321
  Receipt Date: 20230321
  Transmission Date: 20230418
  Serious: Yes (Other)
  Sender: FDA-Public Use
  Company Number: CA-PFIZER INC-2019558451

PATIENT
  Age: 53 Year
  Sex: Female

DRUGS (8)
  1. METHOTREXATE SODIUM [Suspect]
     Active Substance: METHOTREXATE SODIUM
     Route: 065
  2. COSENTYX [Suspect]
     Active Substance: SECUKINUMAB
     Indication: Psoriasis
     Dosage: 300 MG, WEEKLY
     Route: 058
  3. COSENTYX [Suspect]
     Active Substance: SECUKINUMAB
     Indication: Psoriasis
     Dosage: UNK
     Route: 058
  4. COSENTYX [Suspect]
     Active Substance: SECUKINUMAB
     Dosage: 300 MG, MONTHLY
     Route: 058
  5. COSENTYX [Suspect]
     Active Substance: SECUKINUMAB
     Dosage: 300 MG, MONTHLY
     Route: 058
  6. COSENTYX [Suspect]
     Active Substance: SECUKINUMAB
     Dosage: 300 MG, MONTHLY
     Route: 058
  7. COSENTYX [Suspect]
     Active Substance: SECUKINUMAB
     Dosage: 300 MG, MONTHLY
     Route: 058
  8. COSENTYX [Suspect]
     Active Substance: SECUKINUMAB
     Dosage: UNK
     Route: 065

REACTIONS (14)
  - Anal inflammation [Not Recovered/Not Resolved]
  - Haemoptysis [Not Recovered/Not Resolved]
  - Haemorrhoids [Not Recovered/Not Resolved]
  - Macule [Not Recovered/Not Resolved]
  - Neoplasm malignant [Not Recovered/Not Resolved]
  - Pruritus [Not Recovered/Not Resolved]
  - Psoriasis [Not Recovered/Not Resolved]
  - Sputum discoloured [Not Recovered/Not Resolved]
  - Anal pruritus [Not Recovered/Not Resolved]
  - COVID-19 [Not Recovered/Not Resolved]
  - Chills [Not Recovered/Not Resolved]
  - Diarrhoea [Not Recovered/Not Resolved]
  - Pain [Not Recovered/Not Resolved]
  - Pyrexia [Not Recovered/Not Resolved]
